FAERS Safety Report 9674243 (Version 1)
Quarter: 2013Q4

REPORT INFORMATION
  Report Type: Spontaneous
  Country: US (occurrence: US)
  Receive Date: 20131107
  Receipt Date: 20131107
  Transmission Date: 20140711
  Serious: No
  Sender: FDA-Public Use
  Company Number: US-009507513-1311USA000724

PATIENT
  Age: 49 Year
  Sex: Female

DRUGS (2)
  1. COZAAR [Suspect]
     Dosage: UNK
     Route: 048
     Dates: start: 20131005, end: 20131005
  2. AMLODIPINE [Suspect]
     Dosage: UNK
     Dates: start: 20131005, end: 20131005

REACTIONS (7)
  - Condition aggravated [Unknown]
  - Back pain [Unknown]
  - Fatigue [Unknown]
  - Drug ineffective [Unknown]
  - Dizziness [Unknown]
  - Asthenia [Unknown]
  - Headache [Unknown]
